FAERS Safety Report 4393476-X (Version None)
Quarter: 2004Q3

REPORT INFORMATION
  Report Type: 
  Country: None (occurrence: None)
  Receive Date: 20040709
  Receipt Date: 20040130
  Transmission Date: 20050211
  Serious: Yes (Disabling, Other)
  Sender: FDA-Public Use
  Company Number: PHBS2004JP01559

PATIENT
  Age: 10 Year
  Sex: Male
  Weight: 28 kg

DRUGS (8)
  1. TEGRETOL [Suspect]
     Indication: CONVULSION
     Dosage: 250 MG, TID
     Route: 048
     Dates: start: 19980101, end: 20040116
  2. EXCEGRAN [Suspect]
     Indication: CONVULSION
     Dosage: 270 MG/DAY
     Route: 048
     Dates: start: 20031127, end: 20040116
  3. MEILAX [Concomitant]
     Indication: CONVULSION
     Dosage: 3 MG/DAY
     Route: 048
     Dates: start: 20011201, end: 20040116
  4. DANTRIUM [Concomitant]
     Indication: CEREBRAL PALSY
     Dosage: 75 MG/DAY
     Route: 048
     Dates: start: 20011201, end: 20040116
  5. CLOBAZAM [Suspect]
     Indication: CONVULSION
     Dosage: 16 MG/DAY
     Route: 048
     Dates: start: 20031101, end: 20040116
  6. ALFAROL [Concomitant]
     Indication: FRACTURE
     Dosage: 0.2 UG/DAY
     Route: 048
     Dates: start: 20030601, end: 20040113
  7. SEVOFRANE [Concomitant]
     Indication: ANAESTHESIA
     Route: 048
     Dates: start: 20040113, end: 20040113
  8. NITROUS OXIDE [Concomitant]
     Indication: ANAESTHESIA
     Route: 048
     Dates: start: 20040113, end: 20040113

REACTIONS (12)
  - ATRIOVENTRICULAR BLOCK COMPLETE [None]
  - ATRIOVENTRICULAR BLOCK SECOND DEGREE [None]
  - BRADYCARDIA [None]
  - DRUG INTERACTION [None]
  - DRUG LEVEL INCREASED [None]
  - HEART RATE DECREASED [None]
  - HEART RATE IRREGULAR [None]
  - HYDROCEPHALUS [None]
  - OLIGURIA [None]
  - PNEUMONIA [None]
  - PULMONARY OEDEMA [None]
  - VENTRICULO-PERITONEAL SHUNT [None]
